FAERS Safety Report 6256608-4 (Version None)
Quarter: 2009Q3

REPORT INFORMATION
  Report Type: 
  Country: None (occurrence: None)
  Receive Date: 20090706
  Receipt Date: 20090623
  Transmission Date: 20100115
  Serious: Yes (Other)
  Sender: FDA-Public Use
  Company Number: US-BAYER-200914870NA

PATIENT
  Age: 67 Year
  Sex: Female
  Weight: 57 kg

DRUGS (3)
  1. BETASERON [Suspect]
     Indication: RELAPSING-REMITTING MULTIPLE SCLEROSIS
     Route: 058
     Dates: start: 20061205, end: 20080415
  2. ENBREL [Suspect]
     Indication: PYODERMA GANGRENOSUM
     Dosage: STOP FOR 2 WEEKS AND RESTARTED
     Route: 058
     Dates: start: 20080101
  3. ENBREL [Suspect]
     Route: 058
     Dates: start: 20080301, end: 20080401

REACTIONS (2)
  - EYE DISORDER [None]
  - PYODERMA GANGRENOSUM [None]
